FAERS Safety Report 7179218-3 (Version None)
Quarter: 2010Q4

REPORT INFORMATION
  Report Type: 
  Country: None (occurrence: None)
  Receive Date: 20101221
  Receipt Date: 20101213
  Transmission Date: 20110411
  Serious: Yes (Other)
  Sender: FDA-Public Use
  Company Number: DE-SANOFI-AVENTIS-2010SA072906

PATIENT
  Age: 62 Year
  Sex: Female
  Weight: 69 kg

DRUGS (6)
  1. MULTAQ [Suspect]
     Route: 048
     Dates: start: 20100501
  2. BISOPROLOL [Concomitant]
     Indication: TACHYCARDIA
     Dosage: DOSAGE: 5-0-2.5
     Route: 048
  3. HYDROCHLOROTHIAZIDE [Concomitant]
     Dosage: DOSAGE: 1/2 TABLET DAILY
     Route: 048
  4. HYDROCHLOROTHIAZIDE [Concomitant]
     Dosage: DOSAGE: 1/2 TABLET DAILY
     Route: 048
  5. ACETYLSALICYLIC ACID [Concomitant]
     Route: 048
  6. APROVEL [Concomitant]
     Dosage: DOSAGE: 1/2 TABLET DAILY.
     Route: 048

REACTIONS (3)
  - ATRIAL FIBRILLATION [None]
  - MALAISE [None]
  - NAUSEA [None]
